FAERS Safety Report 13632529 (Version 6)
Quarter: 2018Q3

REPORT INFORMATION
  Report Type: Report from Study
  Country: None (occurrence: US)
  Receive Date: 20170608
  Receipt Date: 20180703
  Transmission Date: 20181010
  Serious: Yes (Other)
  Sender: FDA-Public Use
  Company Number: US-ABBVIE-17K-163-1999951-00

PATIENT
  Age: 57 Year
  Sex: Female

DRUGS (2)
  1. HUMIRA [Suspect]
     Active Substance: ADALIMUMAB
     Indication: PSORIASIS
     Route: 058
     Dates: end: 20170429
  2. HUMIRA [Suspect]
     Active Substance: ADALIMUMAB
     Indication: PSORIATIC ARTHROPATHY
     Route: 058
     Dates: start: 201706

REACTIONS (22)
  - Carpal tunnel syndrome [Unknown]
  - Migraine [Not Recovered/Not Resolved]
  - Arthritis [Unknown]
  - Oral herpes [Recovered/Resolved]
  - Back pain [Unknown]
  - Trigger finger [Unknown]
  - Nephrolithiasis [Unknown]
  - Pain [Recovered/Resolved]
  - Herpes zoster infection neurological [Unknown]
  - Spinal osteoarthritis [Unknown]
  - Inflammation [Unknown]
  - Fractured sacrum [Unknown]
  - Pain in extremity [Recovering/Resolving]
  - Joint lock [Unknown]
  - Limb injury [Unknown]
  - Ankle fracture [Unknown]
  - Psoriasis [Unknown]
  - Arthralgia [Unknown]
  - Sensitivity to weather change [Unknown]
  - Fall [Unknown]
  - Arthralgia [Recovering/Resolving]
  - Back pain [Recovered/Resolved]

NARRATIVE: CASE EVENT DATE: 2017
